FAERS Safety Report 4511212-0 (Version None)
Quarter: 2004Q4

REPORT INFORMATION
  Report Type: 
  Country: None (occurrence: None)
  Receive Date: 20041122
  Receipt Date: 20041122
  Transmission Date: 20050328
  Serious: Yes (Disabling)
  Sender: FDA-Public Use
  Company Number: None

PATIENT
  Age: 76 Year
  Sex: Male
  Weight: 86.1834 kg

DRUGS (3)
  1. FLOMAX [Suspect]
     Indication: URINARY RETENTION
     Dosage: 1 CAPSULE  DAILY  ORAL
     Route: 048
     Dates: start: 20040612, end: 20041120
  2. ZOLADEX [Concomitant]
  3. CASODEX [Concomitant]

REACTIONS (4)
  - FACIAL PALSY [None]
  - HYPOAESTHESIA [None]
  - PARAESTHESIA [None]
  - PERONEAL NERVE PALSY [None]
